FAERS Safety Report 20205698 (Version 1)
Quarter: 2021Q4

REPORT INFORMATION
  Report Type: Spontaneous
  Country: TW (occurrence: TW)
  Receive Date: 20211220
  Receipt Date: 20211220
  Transmission Date: 20220303
  Serious: Yes (Other)
  Sender: FDA-Public Use
  Company Number: TW-SUN PHARMACEUTICAL INDUSTRIES LTD-2021RR-321046

PATIENT
  Age: 19 Year
  Sex: Male

DRUGS (4)
  1. IMATINIB [Suspect]
     Active Substance: IMATINIB
     Indication: Chronic myeloid leukaemia
     Dosage: 400 MILLIGRAM, DAILY
     Route: 065
  2. IMATINIB [Suspect]
     Active Substance: IMATINIB
     Dosage: 600 MILLIGRAM, DAILY
     Route: 065
  3. IMATINIB [Suspect]
     Active Substance: IMATINIB
     Dosage: 500 MILLIGRAM, DAILY
     Route: 065
  4. IMATINIB [Suspect]
     Active Substance: IMATINIB
     Dosage: 200 MILLIGRAM, DAILY
     Route: 065

REACTIONS (6)
  - Pericardial effusion [Recovered/Resolved]
  - Campylobacter infection [Recovered/Resolved]
  - Influenza [Unknown]
  - Myocarditis infectious [Unknown]
  - Leukopenia [Unknown]
  - Cytopenia [Unknown]
